FAERS Safety Report 17268796 (Version 1)
Quarter: 2020Q1

REPORT INFORMATION
  Report Type: Spontaneous
  Country: US (occurrence: US)
  Receive Date: 20200114
  Receipt Date: 20200114
  Transmission Date: 20200409
  Serious: No
  Sender: FDA-Public Use
  Company Number: US-VANDA PHARMACEUTICALS, INC-2019TASUS003261

PATIENT
  Sex: Female

DRUGS (2)
  1. HETLIOZ [Suspect]
     Active Substance: TASIMELTEON
     Indication: NON-24-HOUR SLEEP-WAKE DISORDER
     Dosage: 20 MG, QD
     Dates: start: 20190429
  2. VRAYLAR [Concomitant]
     Active Substance: CARIPRAZINE
     Indication: MUSCULOSKELETAL DISCOMFORT

REACTIONS (5)
  - Blood iron decreased [Unknown]
  - Vitamin B12 deficiency [Unknown]
  - Musculoskeletal discomfort [Unknown]
  - Abdominal pain upper [Unknown]
  - Progesterone decreased [Unknown]
